FAERS Safety Report 17924278 (Version 2)
Quarter: 2020Q2

REPORT INFORMATION
  Report Type: Spontaneous
  Country: BR (occurrence: BR)
  Receive Date: 20200622
  Receipt Date: 20200624
  Transmission Date: 20200714
  Serious: Yes (Other)
  Sender: FDA-Public Use
  Company Number: BR-PFIZER INC-2019178805

PATIENT
  Sex: Female

DRUGS (5)
  1. XALATAN [Suspect]
     Active Substance: LATANOPROST
     Dosage: 1 GTT, 3X/DAY (1 GTT AT MORNING, 1 GTT AT AFTERNOON AND 1 GTT AT EVENING)
     Route: 047
  2. XALATAN [Suspect]
     Active Substance: LATANOPROST
     Indication: GLAUCOMA
     Dosage: UNK, 2X/DAY (MORNING AND AFTERNOON)
     Route: 047
  3. XALATAN [Suspect]
     Active Substance: LATANOPROST
     Dosage: 1 DROP, 2X/DAY (A DROP IN EACH EYE TWICE A DAY)
     Route: 047
  4. XALATAN [Suspect]
     Active Substance: LATANOPROST
     Dosage: 1 DROP, 2X/DAY (A DROP IN EACH EYE TWICE A DAY)
     Route: 047
  5. FRONTAL [Concomitant]
     Active Substance: ALPRAZOLAM
     Dosage: 2 MG

REACTIONS (5)
  - Hypertension [Unknown]
  - Fatigue [Unknown]
  - Hearing disability [Unknown]
  - Product use issue [Unknown]
  - Incorrect dose administered [Unknown]
